FAERS Safety Report 25931649 (Version 2)
Quarter: 2025Q4

REPORT INFORMATION
  Report Type: Spontaneous
  Country: EU (occurrence: EU)
  Receive Date: 20251016
  Receipt Date: 20251111
  Transmission Date: 20260118
  Serious: Yes (Disabling)
  Sender: IPSEN BIOPHARMACEUTICALS, INC.
  Company Number: EU-IPSEN Group, Research and Development-2024-21346

PATIENT
  Age: 65 Year
  Sex: Female

DRUGS (7)
  1. DYSPORT [Suspect]
     Active Substance: ABOBOTULINUMTOXINA
     Indication: Muscle spasticity
     Route: 030
     Dates: start: 20240516
  2. DYSPORT [Suspect]
     Active Substance: ABOBOTULINUMTOXINA
     Dosage: IN LOWER LIMBS AND TRAPEZIA
     Route: 030
     Dates: start: 20240920, end: 20250920
  3. KARDEGIC (ACETYLSALICYLIC ACID) [Concomitant]
  4. PANTOPRAZOLE [Concomitant]
     Active Substance: PANTOPRAZOLE
  5. TAHOR [Concomitant]
     Active Substance: ATORVASTATIN CALCIUM
  6. COKENZEN (CANDESARTAN/ HYDROCHLOROTHIAZIDE) [Concomitant]
     Dosage: CANDESARTAN 16 MG/HYDROCHLOROTHIAZIDE 12.50 MG
  7. PAROXETINE [Concomitant]
     Active Substance: PAROXETINE

REACTIONS (6)
  - Dyspnoea [Recovered/Resolved]
  - Dysphonia [Recovered/Resolved]
  - Fatigue [Recovered/Resolved]
  - Dysphonia [Recovered/Resolved]
  - Asthenia [Recovered/Resolved]
  - Off label use [Unknown]

NARRATIVE: CASE EVENT DATE: 20240516
